FAERS Safety Report 4377447-5 (Version None)
Quarter: 2004Q2

REPORT INFORMATION
  Report Type: 
  Country: None (occurrence: None)
  Receive Date: 20040615
  Receipt Date: 20040604
  Transmission Date: 20050107
  Serious: Yes (Hospitalization)
  Sender: FDA-Public Use
  Company Number: GB-BRISTOL-MYERS SQUIBB COMPANY-12604930

PATIENT
  Age: 61 Year
  Sex: Female

DRUGS (11)
  1. CARBOPLATIN [Suspect]
     Indication: OVARIAN CANCER
     Route: 042
     Dates: start: 20040203, end: 20040203
  2. PACLITAXEL [Suspect]
     Indication: OVARIAN CANCER
     Route: 042
     Dates: start: 20040203, end: 20040203
  3. SOTALOL HCL [Concomitant]
     Dates: start: 20030101
  4. ASPIRIN [Concomitant]
     Dates: start: 20030101
  5. GRANISETRON [Concomitant]
     Dates: start: 20040203
  6. DEXAMETHASONE [Concomitant]
     Dates: start: 20040203
  7. DOMPERIDONE [Concomitant]
     Dates: start: 20040203
  8. CORSODYL [Concomitant]
     Dates: start: 20030203
  9. NYSTATIN [Concomitant]
     Dates: start: 20040203
  10. RANITIDINE [Concomitant]
     Dates: start: 20040203
  11. ACETAMINOPHEN [Concomitant]
     Dates: start: 20040204

REACTIONS (2)
  - DEHYDRATION [None]
  - LOOSE STOOLS [None]
